FAERS Safety Report 22933265 (Version 3)
Quarter: 2023Q4

REPORT INFORMATION
  Report Type: Report from Study
  Country: US (occurrence: US)
  Receive Date: 20230912
  Receipt Date: 20231103
  Transmission Date: 20240110
  Serious: Yes (Other)
  Sender: FDA-Public Use
  Company Number: US-JNJFOC-20230905599

PATIENT
  Age: 52 Year
  Sex: Female

DRUGS (2)
  1. SPRAVATO [Suspect]
     Active Substance: ESKETAMINE
     Indication: Depression
     Dosage: ^84 MG, 9 TOTAL DOSES^
     Dates: start: 20230829, end: 20230926
  2. SPRAVATO [Suspect]
     Active Substance: ESKETAMINE
     Dates: end: 20231017

REACTIONS (9)
  - Suicidal ideation [Recovered/Resolved]
  - Feeling abnormal [Unknown]
  - Depressed mood [Not Recovered/Not Resolved]
  - Drug ineffective [Unknown]
  - Somnolence [Unknown]
  - Migraine [Unknown]
  - Psychiatric symptom [Unknown]
  - Depression [Not Recovered/Not Resolved]
  - Feeling abnormal [Unknown]

NARRATIVE: CASE EVENT DATE: 20230101
